FAERS Safety Report 14452554 (Version 1)
Quarter: 2018Q1

REPORT INFORMATION
  Report Type: Other
  Country: FR (occurrence: FR)
  Receive Date: 20180129
  Receipt Date: 20180129
  Transmission Date: 20180509
  Serious: Yes (Hospitalization, Other)
  Sender: FDA-Public Use
  Company Number: FR-ASTELLAS-2018US003599

PATIENT
  Age: 22 Year
  Sex: Male
  Weight: 59 kg

DRUGS (2)
  1. PROGRAF [Suspect]
     Active Substance: TACROLIMUS\TACROLIMUS ANHYDROUS
     Indication: HEART TRANSPLANT
     Route: 048
     Dates: end: 20180104
  2. ZECLAR [Interacting]
     Active Substance: CLARITHROMYCIN
     Indication: LUNG DISORDER
     Route: 042
     Dates: start: 20180102, end: 20180103

REACTIONS (3)
  - Drug interaction [Unknown]
  - Immunosuppressant drug level increased [Recovered/Resolved]
  - Acute kidney injury [Recovered/Resolved]

NARRATIVE: CASE EVENT DATE: 20180102
